FAERS Safety Report 18423038 (Version 2)
Quarter: 2020Q4

REPORT INFORMATION
  Report Type: Spontaneous
  Country: US (occurrence: US)
  Receive Date: 20201024
  Receipt Date: 20201027
  Transmission Date: 20210114
  Serious: No
  Sender: FDA-Public Use
  Company Number: US-GLAXOSMITHKLINE-US2020AMR205210

PATIENT
  Sex: Female

DRUGS (1)
  1. ZEJULA [Suspect]
     Active Substance: NIRAPARIB
     Indication: OVARIAN CANCER
     Dosage: 200 MG, QD
     Route: 048
     Dates: start: 20201007

REACTIONS (9)
  - Fatigue [Unknown]
  - Decreased appetite [Unknown]
  - Blood pressure increased [Unknown]
  - Nausea [Unknown]
  - Dizziness [Unknown]
  - Balance disorder [Unknown]
  - Feeling abnormal [Unknown]
  - Tremor [Unknown]
  - Vomiting [Recovered/Resolved]
